FAERS Safety Report 16804761 (Version 2)
Quarter: 2020Q4

REPORT INFORMATION
  Report Type: Spontaneous
  Country: US (occurrence: US)
  Receive Date: 20190913
  Receipt Date: 20201023
  Transmission Date: 20210113
  Serious: No
  Sender: FDA-Public Use
  Company Number: US-APOTEX-2019AP021425

PATIENT
  Sex: Male

DRUGS (1)
  1. FLUTICASONE. [Suspect]
     Active Substance: FLUTICASONE
     Indication: PRODUCT USED FOR UNKNOWN INDICATION
     Dosage: UNK (1 SPRAY IN EACH NOSTRIL)
     Route: 045

REACTIONS (4)
  - Product odour abnormal [Recovered/Resolved]
  - Treatment noncompliance [Unknown]
  - Product container issue [Unknown]
  - Product dose omission issue [Unknown]
